FAERS Safety Report 24800307 (Version 1)
Quarter: 2025Q1

REPORT INFORMATION
  Report Type: Spontaneous
  Country: US (occurrence: None)
  Receive Date: 20250101
  Receipt Date: 20250101
  Transmission Date: 20250409
  Serious: No
  Sender: FDA-CTU
  Company Number: None

PATIENT
  Age: 82 Year
  Sex: Male
  Weight: 58.5 kg

DRUGS (3)
  1. RITUXIMAB [Suspect]
     Active Substance: RITUXIMAB
  2. BENDAMUSTINE [Suspect]
     Active Substance: BENDAMUSTINE
  3. pace maker and port [Concomitant]

REACTIONS (3)
  - Rash [None]
  - Psoriasis [None]
  - Rash [None]

NARRATIVE: CASE EVENT DATE: 20241112
